FAERS Safety Report 6279417-9 (Version None)
Quarter: 2009Q3

REPORT INFORMATION
  Report Type: 
  Country: None (occurrence: None)
  Receive Date: 20090721
  Receipt Date: 20090710
  Transmission Date: 20100115
  Serious: Yes (Life-Threatening, Hospitalization)
  Sender: FDA-Public Use
  Company Number: 220030K09GBR

PATIENT
  Age: 14 Year
  Sex: Female

DRUGS (5)
  1. SAIZEN [Suspect]
     Dosage: 1.2 MG, 1 IN 1 DAYS
     Dates: start: 20090323
  2. BACTRIM [Concomitant]
  3. MYCOPHENOLATE MOFETIL [Concomitant]
  4. PREDNISOLONE [Concomitant]
  5. FOLIC ACID [Concomitant]

REACTIONS (8)
  - ASTHENIA [None]
  - BLOOD POTASSIUM DECREASED [None]
  - HAEMOGLOBIN DECREASED [None]
  - HEADACHE [None]
  - HYPOTENSION [None]
  - PYREXIA [None]
  - SEPSIS [None]
  - VOMITING [None]
